FAERS Safety Report 6839587-8 (Version None)
Quarter: 2010Q3

REPORT INFORMATION
  Report Type: 
  Country: None (occurrence: None)
  Receive Date: 20100714
  Receipt Date: 20100430
  Transmission Date: 20110219
  Serious: No
  Sender: FDA-Public Use
  Company Number: A0857500A

PATIENT
  Sex: Male

DRUGS (10)
  1. FLOVENT [Suspect]
     Indication: CHRONIC OBSTRUCTIVE PULMONARY DISEASE
     Dosage: 1PUFF TWICE PER DAY
     Route: 055
  2. CRESTOR [Concomitant]
  3. FLOMAX [Concomitant]
  4. TIAZAC [Concomitant]
  5. PRILOSEC [Concomitant]
  6. WARFARIN [Concomitant]
  7. ADVAIR DISKUS 100/50 [Concomitant]
  8. SPIRIVA [Concomitant]
  9. KLOR-CON [Concomitant]
  10. FUROSEMIDE [Concomitant]

REACTIONS (1)
  - OVERDOSE [None]
